FAERS Safety Report 9569081 (Version 3)
Quarter: 2014Q3

REPORT INFORMATION
  Report Type: Spontaneous
  Country: US (occurrence: US)
  Receive Date: 20130930
  Receipt Date: 20140724
  Transmission Date: 20150326
  Serious: No
  Sender: FDA-Public Use
  Company Number: US-AMGEN-USASP2013056592

PATIENT
  Age: 66 Year
  Sex: Male
  Weight: 104.31 kg

DRUGS (1)
  1. ENBREL [Suspect]
     Active Substance: ETANERCEPT
     Indication: PSORIASIS
     Dosage: 50 MG, TWICE WEEKLY FOR THREE MONTHS
     Route: 058
     Dates: start: 20130731, end: 2013

REACTIONS (3)
  - Drug effect incomplete [Not Recovered/Not Resolved]
  - Hypoaesthesia [Unknown]
  - Psoriasis [Not Recovered/Not Resolved]

NARRATIVE: CASE EVENT DATE: 20130731
